FAERS Safety Report 7071142-X (Version None)
Quarter: 2010Q4

REPORT INFORMATION
  Report Type: 
  Country: None (occurrence: None)
  Receive Date: 20101027
  Receipt Date: 20101027
  Transmission Date: 20110411
  Serious: No
  Sender: FDA-Public Use
  Company Number: None

PATIENT
  Age: 1 Year
  Sex: Female
  Weight: 9.9791 kg

DRUGS (1)
  1. HYLAND'S TEETHING TABLETS 2-3 PILLS HYLAND'S [Suspect]
     Indication: TEETHING
     Dosage: 3 PILLS 1 PER DAY PO
     Route: 048
     Dates: start: 20100101, end: 20101001

REACTIONS (1)
  - SOMNOLENCE [None]
